FAERS Safety Report 7740670-3 (Version None)
Quarter: 2011Q3

REPORT INFORMATION
  Report Type: 
  Country: None (occurrence: None)
  Receive Date: 20110909
  Receipt Date: 20110831
  Transmission Date: 20111222
  Serious: Yes (Other)
  Sender: FDA-Public Use
  Company Number: CA-JNJFOC-20110900364

PATIENT
  Sex: Female
  Weight: 72.58 kg

DRUGS (1)
  1. STELARA [Suspect]
     Indication: PSORIASIS
     Dosage: WEEKS 0, 4, 16, 28 AND AS DIRECTED
     Route: 058
     Dates: start: 20110514

REACTIONS (2)
  - LOCALISED INFECTION [None]
  - INFECTION [None]
